FAERS Safety Report 5952838-7 (Version None)
Quarter: 2008Q4

REPORT INFORMATION
  Report Type: 
  Country: None (occurrence: None)
  Receive Date: 20081114
  Receipt Date: 20080625
  Transmission Date: 20090506
  Serious: Yes (Hospitalization)
  Sender: FDA-Public Use
  Company Number: IN-AVENTIS-200815392GDDC

PATIENT
  Age: 70 Year
  Sex: Male
  Weight: 45 kg

DRUGS (10)
  1. PLACEBO [Suspect]
     Indication: NON-SMALL CELL LUNG CANCER
     Route: 042
     Dates: start: 20080603, end: 20080603
  2. DOCETAXEL [Suspect]
     Indication: NON-SMALL CELL LUNG CANCER
     Route: 042
     Dates: start: 20080603, end: 20080603
  3. PAN [Concomitant]
  4. MULTI-VITAMINS [Concomitant]
  5. CLOGEN [Concomitant]
  6. DOMSTAL [Concomitant]
  7. MONOCEF                            /00612001/ [Concomitant]
  8. AMIKACIN [Concomitant]
  9. ZOFER [Concomitant]
  10. ESIFLO [Concomitant]

REACTIONS (2)
  - MYOSITIS [None]
  - PYREXIA [None]
